FAERS Safety Report 14571130 (Version 1)
Quarter: 2018Q1

REPORT INFORMATION
  Report Type: Report from Study
  Country: IL (occurrence: IL)
  Receive Date: 20180226
  Receipt Date: 20180226
  Transmission Date: 20180509
  Serious: Yes (Hospitalization, Other)
  Sender: FDA-Public Use
  Company Number: IL-ACCORD-063658

PATIENT
  Age: 36 Year
  Sex: Male

DRUGS (4)
  1. CLONAZEPAM. [Suspect]
     Active Substance: CLONAZEPAM
     Indication: SEIZURE
  2. TOPIRAMATE. [Interacting]
     Active Substance: TOPIRAMATE
     Indication: SEIZURE
  3. VALPROIC ACID. [Interacting]
     Active Substance: VALPROIC ACID
     Indication: SEIZURE
  4. OXCARBAZEPINE. [Interacting]
     Active Substance: OXCARBAZEPINE
     Indication: SEIZURE

REACTIONS (4)
  - Drug interaction [Unknown]
  - Encephalopathy [Recovering/Resolving]
  - Ataxia [Recovering/Resolving]
  - Hyperammonaemia [Recovered/Resolved]
